FAERS Safety Report 4795351-5 (Version None)
Quarter: 2005Q4

REPORT INFORMATION
  Report Type: 
  Country: None (occurrence: None)
  Receive Date: 20051012
  Receipt Date: 20051004
  Transmission Date: 20060501
  Serious: Yes (Hospitalization)
  Sender: FDA-Public Use
  Company Number: US-JNJFOC-20051001195

PATIENT
  Sex: Male
  Weight: 54.43 kg

DRUGS (6)
  1. FENTANYL [Suspect]
     Route: 062
  2. FENTANYL [Suspect]
     Route: 062
  3. FENTANYL [Suspect]
     Route: 062
  4. FENTANYL [Suspect]
     Route: 062
  5. AGGRENOX [Concomitant]
     Dates: start: 20050801
  6. AGGRENOX [Concomitant]
     Dates: start: 20050801

REACTIONS (6)
  - ABASIA [None]
  - ASTHENIA [None]
  - CEREBROVASCULAR ACCIDENT [None]
  - DISORIENTATION [None]
  - OVERDOSE [None]
  - SOMNOLENCE [None]
